FAERS Safety Report 15626266 (Version 1)
Quarter: 2018Q4

REPORT INFORMATION
  Report Type: Spontaneous
  Country: US (occurrence: US)
  Receive Date: 20181116
  Receipt Date: 20181116
  Transmission Date: 20190205
  Serious: Yes (Other)
  Sender: FDA-Public Use
  Company Number: US-SA-2018SA002485

PATIENT
  Age: 46 Year
  Sex: Female
  Weight: 113.39 kg

DRUGS (10)
  1. TAXOTERE [Suspect]
     Active Substance: DOCETAXEL
     Dosage: 170-190 MG
     Route: 042
     Dates: start: 20160224, end: 20160224
  2. K-DUR [Concomitant]
     Active Substance: POTASSIUM CHLORIDE
  3. TAXOTERE [Suspect]
     Active Substance: DOCETAXEL
     Indication: BREAST CANCER FEMALE
     Dosage: 170-190 MG
     Route: 042
     Dates: start: 201601, end: 201601
  4. TYLENOL [Concomitant]
     Active Substance: ACETAMINOPHEN
  5. DOXORUBICIN [Concomitant]
     Active Substance: DOXORUBICIN
  6. COREG [Concomitant]
     Active Substance: CARVEDILOL
     Dosage: UNK, UNK
     Dates: start: 200401
  7. PARACETAMOL [Concomitant]
     Active Substance: ACETAMINOPHEN
  8. NEOSAR [Concomitant]
     Active Substance: CYCLOPHOSPHAMIDE
  9. LASIX [Concomitant]
     Active Substance: FUROSEMIDE
  10. OXYCODONE [Concomitant]
     Active Substance: OXYCODONE

REACTIONS (1)
  - Alopecia [Recovering/Resolving]

NARRATIVE: CASE EVENT DATE: 200605
